FAERS Safety Report 11549206 (Version 2)
Quarter: 2015Q4

REPORT INFORMATION
  Report Type: Spontaneous
  Country: US (occurrence: US)
  Receive Date: 20150924
  Receipt Date: 20151014
  Transmission Date: 20160304
  Serious: No
  Sender: FDA-Public Use
  Company Number: US-ACTELION PHARMACEUTICALS US, INC.-A-US2015-123819

PATIENT
  Age: 57 Year
  Sex: Female

DRUGS (1)
  1. VELETRI [Suspect]
     Active Substance: EPOPROSTENOL
     Indication: PULMONARY ARTERIAL HYPERTENSION
     Dosage: 9 NG/KG, PER MIN
     Route: 042
     Dates: start: 20150901

REACTIONS (7)
  - Nausea [Unknown]
  - Insomnia [Unknown]
  - Diarrhoea [Unknown]
  - Epistaxis [Unknown]
  - Asthenia [Unknown]
  - Headache [Unknown]
  - Pain in jaw [Unknown]
